FAERS Safety Report 15094497 (Version 1)
Quarter: 2018Q2

REPORT INFORMATION
  Report Type: Spontaneous
  Country: PT (occurrence: PT)
  Receive Date: 20180630
  Receipt Date: 20180630
  Transmission Date: 20180711
  Serious: Yes (Hospitalization, Other)
  Sender: FDA-Public Use
  Company Number: PT-AUROBINDO-AUR-APL-2018-033796

PATIENT
  Age: 68 Year
  Sex: Female

DRUGS (5)
  1. LINEZOLID. [Suspect]
     Active Substance: LINEZOLID
     Indication: EVIDENCE BASED TREATMENT
     Dosage: UNK ()
     Route: 065
  2. CLINDAMYCIN. [Suspect]
     Active Substance: CLINDAMYCIN
     Indication: EVIDENCE BASED TREATMENT
     Dosage: UNK ()
     Route: 065
  3. AZITHROMYCIN ANHYDROUS. [Suspect]
     Active Substance: AZITHROMYCIN ANHYDROUS
     Indication: EVIDENCE BASED TREATMENT
     Dosage: UNK ()
     Route: 065
  4. CEFTRIAXONE. [Suspect]
     Active Substance: CEFTRIAXONE
     Indication: EVIDENCE BASED TREATMENT
     Dosage: UNK ()
     Route: 065
  5. PIPERACILLIN AND TAZOBACTAM [Suspect]
     Active Substance: PIPERACILLIN SODIUM\TAZOBACTAM SODIUM
     Indication: EVIDENCE BASED TREATMENT
     Dosage: UNK ()
     Route: 065

REACTIONS (8)
  - Cyanosis [Unknown]
  - Staphylococcal sepsis [Unknown]
  - Hypotension [Unknown]
  - Pneumonia necrotising [Recovering/Resolving]
  - Rales [Unknown]
  - Tachypnoea [Unknown]
  - Pneumothorax [Recovering/Resolving]
  - Disorientation [Unknown]
